FAERS Safety Report 18861068 (Version 1)
Quarter: 2021Q1

REPORT INFORMATION
  Report Type: Report from Study
  Country: US (occurrence: US)
  Receive Date: 20210208
  Receipt Date: 20210208
  Transmission Date: 20210420
  Serious: No
  Sender: FDA-Public Use
  Company Number: NVSC2021US021666

PATIENT
  Sex: Female

DRUGS (1)
  1. XIIDRA [Suspect]
     Active Substance: LIFITEGRAST
     Indication: EYE INFLAMMATION
     Route: 065

REACTIONS (7)
  - Lacrimation increased [Unknown]
  - Product physical consistency issue [Unknown]
  - Vision blurred [Unknown]
  - Product container seal issue [Unknown]
  - Eye infection [Unknown]
  - Drug ineffective [Unknown]
  - Eye pain [Unknown]
